FAERS Safety Report 10026898 (Version 2)
Quarter: 2014Q1

REPORT INFORMATION
  Report Type: Spontaneous
  Country: US (occurrence: US)
  Receive Date: 20140321
  Receipt Date: 20140328
  Transmission Date: 20141002
  Serious: No
  Sender: FDA-Public Use
  Company Number: US-009507513-1403USA009745

PATIENT
  Sex: Female

DRUGS (1)
  1. NEXPLANON [Suspect]
     Indication: CONTRACEPTION
     Dosage: 1 STANDARD PACKAGE OF PF APPLI OF 1
     Route: 059

REACTIONS (3)
  - Skin discomfort [Unknown]
  - Device difficult to use [Unknown]
  - Product quality issue [Unknown]
